FAERS Safety Report 22093755 (Version 1)
Quarter: 2023Q1

REPORT INFORMATION
  Report Type: Report from Study
  Country: CN (occurrence: CN)
  Receive Date: 20230314
  Receipt Date: 20230314
  Transmission Date: 20230418
  Serious: Yes (Death, Life-Threatening, Hospitalization, Disabling, Other)
  Sender: FDA-Public Use
  Company Number: CN-JNJFOC-20230316712

PATIENT

DRUGS (1)
  1. CANAGLIFLOZIN [Suspect]
     Active Substance: CANAGLIFLOZIN
     Indication: Diabetes mellitus
     Route: 048

REACTIONS (29)
  - Osteomyelitis [Fatal]
  - Osteomyelitis acute [Fatal]
  - Osteomyelitis chronic [Fatal]
  - Cellulitis [Unknown]
  - Pyelonephritis [Unknown]
  - Renal impairment [Unknown]
  - Diabetic ketoacidosis [Unknown]
  - Euglycaemic diabetic ketoacidosis [Unknown]
  - Ketoacidosis [Unknown]
  - Pancreatitis [Unknown]
  - Toe amputation [Unknown]
  - Metabolic acidosis [Unknown]
  - Skin ulcer [Unknown]
  - Peripheral ischaemia [Unknown]
  - Fasciitis [Unknown]
  - Urinary tract infection [Unknown]
  - Acidosis [Unknown]
  - Foot amputation [Unknown]
  - Leg amputation [Unknown]
  - Diabetic foot [Unknown]
  - Diabetic foot infection [Unknown]
  - Fungal infection [Unknown]
  - Genital infection fungal [Unknown]
  - Localised infection [Unknown]
  - Urinary tract infection [Unknown]
  - Vulvovaginal mycotic infection [Unknown]
  - Blood creatinine increased [Unknown]
  - Renal pain [Unknown]
  - Prostatitis [Unknown]
